FAERS Safety Report 8511015-6 (Version None)
Quarter: 2012Q3

REPORT INFORMATION
  Report Type: 
  Country: None (occurrence: None)
  Receive Date: 20120716
  Receipt Date: 20120706
  Transmission Date: 20120928
  Serious: Yes (Other)
  Sender: FDA-Public Use
  Company Number: CA-JNJFOC-20120703293

PATIENT
  Sex: Female
  Weight: 48 kg

DRUGS (8)
  1. MESALAMINE [Concomitant]
     Route: 065
  2. REMICADE [Suspect]
     Indication: CROHN'S DISEASE
     Route: 042
     Dates: start: 20110201
  3. FOLIC ACID [Concomitant]
     Route: 065
  4. TRAZODONE HCL [Concomitant]
     Route: 065
  5. VITAMIN [Concomitant]
     Route: 065
  6. DESLORATADINE [Concomitant]
     Route: 065
  7. EFFEXOR [Concomitant]
     Route: 065
  8. CLONAZEPAM [Concomitant]
     Route: 065

REACTIONS (6)
  - DIARRHOEA [None]
  - NAUSEA [None]
  - WEIGHT DECREASED [None]
  - FATIGUE [None]
  - DEPRESSION [None]
  - ASTHENIA [None]
